FAERS Safety Report 8206090-2 (Version None)
Quarter: 2012Q1

REPORT INFORMATION
  Report Type: 
  Country: None (occurrence: None)
  Receive Date: 20120313
  Receipt Date: 20120229
  Transmission Date: 20120608
  Serious: Yes (Other)
  Sender: FDA-Public Use
  Company Number: JP-MYLANLABS-2012S1004759

PATIENT
  Age: 69 Year

DRUGS (6)
  1. FLUCONAZOLE [Suspect]
     Route: 048
  2. ETOPOSIDE [Concomitant]
     Indication: LYMPHOMA
     Route: 065
  3. VINCRISTINE [Interacting]
     Indication: LYMPHOMA
     Route: 065
  4. DOXORUBICIN HCL [Concomitant]
     Indication: LYMPHOMA
     Route: 065
  5. PREDNISONE TAB [Concomitant]
     Indication: LYMPHOMA
     Route: 065
  6. CYCLOPHOSPHAMIDE [Concomitant]
     Indication: LYMPHOMA
     Route: 065

REACTIONS (2)
  - ILEUS PARALYTIC [None]
  - DRUG INTERACTION [None]
